FAERS Safety Report 8262356-1 (Version None)
Quarter: 2012Q2

REPORT INFORMATION
  Report Type: 
  Country: None (occurrence: None)
  Receive Date: 20120405
  Receipt Date: 20120330
  Transmission Date: 20120825
  Serious: Yes (Hospitalization)
  Sender: FDA-Public Use
  Company Number: AR-ROCHE-785465

PATIENT
  Sex: Male
  Weight: 167 kg

DRUGS (10)
  1. PREDNISONE TAB [Concomitant]
     Route: 048
  2. OMEPRAZOLE [Concomitant]
  3. ATORVASTATIN [Concomitant]
  4. ACTEMRA [Suspect]
     Indication: RHEUMATOID ARTHRITIS
     Dosage: FREQUENCY Q4S, LAST DOSE PRIOR TO SAE ON 02 JUNE 2010.  TOTAL MONTHLY DOSE: 656 MG.
     Route: 042
  5. PREDNISONE TAB [Concomitant]
     Route: 048
     Dates: start: 20080212, end: 20100522
  6. DICLOFENAC SODIUM [Concomitant]
     Route: 048
  7. METHOTREXATE [Concomitant]
     Dosage: FREQUENCY: AS MUCH AS NEEDED (QS)
     Route: 048
  8. DICLOFENAC SODIUM [Concomitant]
     Route: 048
     Dates: start: 20080214, end: 20100522
  9. ARTERIOSAN PLUS [Concomitant]
     Dosage: 1 TABLET
  10. OMEPRAZOLE [Concomitant]
     Dates: start: 20080314, end: 20080522

REACTIONS (1)
  - CHEST PAIN [None]
